FAERS Safety Report 13423590 (Version 1)
Quarter: 2017Q2

REPORT INFORMATION
  Report Type: Spontaneous
  Country: GB (occurrence: GB)
  Receive Date: 20170410
  Receipt Date: 20170410
  Transmission Date: 20170830
  Serious: Yes (Other)
  Sender: FDA-Public Use
  Company Number: GB-PFIZER INC-2017146342

PATIENT
  Age: 75 Year
  Sex: Female

DRUGS (4)
  1. AMIKACIN SULFATE. [Suspect]
     Active Substance: AMIKACIN SULFATE
     Dosage: 675 MG, 2X/DAY
  2. GENTAMICIN SULFATE. [Suspect]
     Active Substance: GENTAMICIN SULFATE
     Dosage: 360 MG, 1X/DAY
     Dates: start: 20170110
  3. FUROSEMIDE. [Suspect]
     Active Substance: FUROSEMIDE
     Dosage: UNK
  4. GENTAMICIN SULFATE. [Suspect]
     Active Substance: GENTAMICIN SULFATE
     Dosage: 450 MG, 1X/DAY
     Route: 042
     Dates: start: 20170108, end: 20170109

REACTIONS (3)
  - Neutropenic sepsis [Unknown]
  - Deafness [Unknown]
  - Incorrect dose administered [Unknown]
